FAERS Safety Report 7591413-8 (Version None)
Quarter: 2011Q3

REPORT INFORMATION
  Report Type: 
  Country: None (occurrence: None)
  Receive Date: 20110706
  Receipt Date: 20110621
  Transmission Date: 20111222
  Serious: Yes (Hospitalization)
  Sender: FDA-Public Use
  Company Number: US-AMGEN-USACT2011031510

PATIENT
  Age: 66 Year
  Sex: Female

DRUGS (6)
  1. CYCLOPHOSPHAMIDE [Concomitant]
     Indication: BREAST CANCER
     Dosage: UNK
     Route: 042
     Dates: start: 20090108
  2. PACLITAXEL [Concomitant]
     Dosage: 80 MG/M2, UNK
     Route: 042
     Dates: start: 20090108
  3. PEGFILGRASTIM [Suspect]
     Indication: BREAST CANCER
     Dosage: 6 MG, UNK
     Route: 058
     Dates: start: 20090108
  4. FILGRASTIM [Suspect]
     Indication: BREAST CANCER
     Dosage: 5 A?G/KG, UNK
     Route: 058
     Dates: start: 20090108
  5. BEVACIZUMAB [Concomitant]
     Indication: BREAST CANCER
     Dosage: UNK UNK, BLINDED
     Route: 042
     Dates: start: 20110108
  6. DOXORUBICIN HCL [Concomitant]
     Indication: BREAST CANCER
     Dosage: 60 MG/M2, UNK
     Route: 042
     Dates: start: 20090108

REACTIONS (5)
  - CYSTITIS [None]
  - HYPONATRAEMIA [None]
  - FATIGUE [None]
  - DEHYDRATION [None]
  - STOMATITIS [None]
